FAERS Safety Report 14694328 (Version 1)
Quarter: 2018Q1

REPORT INFORMATION
  Report Type: Spontaneous
  Country: PL (occurrence: PL)
  Receive Date: 20180329
  Receipt Date: 20180329
  Transmission Date: 20180509
  Serious: Yes (Hospitalization)
  Sender: FDA-Public Use
  Company Number: PL-PFIZER INC-2018125637

PATIENT
  Age: 49 Year
  Sex: Male

DRUGS (2)
  1. SOLU-MEDROL [Suspect]
     Active Substance: METHYLPREDNISOLONE SODIUM SUCCINATE
     Indication: KERATITIS
     Dosage: 1 G, UNK
     Route: 042
  2. EDICIN [Suspect]
     Active Substance: VANCOMYCIN HYDROCHLORIDE
     Indication: KERATITIS
     Dosage: 1 G, 2X/DAY
     Route: 042

REACTIONS (2)
  - Drug ineffective [Unknown]
  - Diabetes mellitus [Unknown]
